FAERS Safety Report 8290880-4 (Version None)
Quarter: 2012Q2

REPORT INFORMATION
  Report Type: 
  Country: None (occurrence: None)
  Receive Date: 20120417
  Receipt Date: 20110725
  Transmission Date: 20120825
  Serious: No
  Sender: FDA-Public Use
  Company Number: US-ASTRAZENECA-2011SE44527

PATIENT
  Sex: Female

DRUGS (2)
  1. NEXIUM [Suspect]
     Route: 048
  2. OVER THE COUNTER MEDICATION [Suspect]
     Route: 065

REACTIONS (4)
  - MALAISE [None]
  - DRUG DOSE OMISSION [None]
  - MUSCLE SPASMS [None]
  - INCORRECT DOSE ADMINISTERED [None]
